FAERS Safety Report 25775539 (Version 1)
Quarter: 2025Q3

REPORT INFORMATION
  Report Type: Spontaneous
  Country: US (occurrence: US)
  Receive Date: 20250909
  Receipt Date: 20250909
  Transmission Date: 20251021
  Serious: No
  Sender: ROCHE
  Company Number: US-ROCHE-10000379558

PATIENT
  Age: 53 Year
  Sex: Female
  Weight: 171 kg

DRUGS (2)
  1. XOLAIR [Suspect]
     Active Substance: OMALIZUMAB
     Indication: Urticaria
     Dosage: 300MG/2ML, DATE XOLAIR LAST ADMINISTERED: 06-AUG-2025
     Route: 058
     Dates: start: 2016
  2. XOLAIR [Suspect]
     Active Substance: OMALIZUMAB
     Indication: Hereditary angioedema

REACTIONS (7)
  - Off label use [Unknown]
  - Product dose omission issue [Unknown]
  - Device defective [Unknown]
  - Accidental exposure to product [Unknown]
  - No adverse event [Unknown]
  - Off label use [Unknown]
  - Needle issue [Unknown]

NARRATIVE: CASE EVENT DATE: 20160101
